FAERS Safety Report 9919264 (Version 1)
Quarter: 2014Q1

REPORT INFORMATION
  Report Type: Spontaneous
  Country: FR (occurrence: FR)
  Receive Date: 20140224
  Receipt Date: 20140224
  Transmission Date: 20141002
  Serious: Yes (Other)
  Sender: FDA-Public Use
  Company Number: FR-SA-2014SA020623

PATIENT
  Age: 78 Year
  Sex: Female

DRUGS (4)
  1. EVOLTRA [Suspect]
     Indication: CHRONIC MYELOMONOCYTIC LEUKAEMIA
     Route: 042
     Dates: start: 20140122, end: 20140126
  2. NOXAFIL [Suspect]
     Indication: PROPHYLAXIS
     Route: 048
     Dates: start: 20140122, end: 20140124
  3. CIFLOX [Suspect]
     Indication: PROPHYLAXIS
     Route: 048
     Dates: start: 20140121, end: 20140127
  4. ARACYTINE [Concomitant]
     Indication: CHRONIC MYELOMONOCYTIC LEUKAEMIA
     Dates: start: 201401, end: 20140131

REACTIONS (1)
  - Hepatocellular injury [Recovering/Resolving]
